FAERS Safety Report 25751234 (Version 2)
Quarter: 2025Q4

REPORT INFORMATION
  Report Type: Spontaneous
  Country: CA (occurrence: CA)
  Receive Date: 20250902
  Receipt Date: 20251009
  Transmission Date: 20260117
  Serious: Yes (Other)
  Sender: NOVARTIS
  Company Number: CA-002147023-NVSC2025CA134331

PATIENT
  Age: 52 Year
  Sex: Female

DRUGS (5)
  1. OCTREOTIDE [Suspect]
     Active Substance: OCTREOTIDE
     Indication: Carcinoid tumour
     Dosage: 30 MG, Q4W
     Route: 030
  2. OCTREOTIDE [Suspect]
     Active Substance: OCTREOTIDE
     Dosage: 30 MG, Q4W
     Route: 030
  3. OCTREOTIDE [Suspect]
     Active Substance: OCTREOTIDE
  4. METFORMIN [Concomitant]
     Active Substance: METFORMIN HYDROCHLORIDE
     Indication: Product used for unknown indication
     Dosage: UNK
     Route: 065
  5. SYNTHROID [Concomitant]
     Active Substance: LEVOTHYROXINE SODIUM
     Indication: Product used for unknown indication
     Dosage: UNK
     Route: 065

REACTIONS (1)
  - Hypertension [Unknown]
